FAERS Safety Report 11060111 (Version 1)
Quarter: 2015Q2

REPORT INFORMATION
  Report Type: Spontaneous
  Country: US (occurrence: US)
  Receive Date: 20150423
  Receipt Date: 20150423
  Transmission Date: 20150821
  Serious: Yes (Other)
  Sender: FDA-Public Use
  Company Number: US-PFIZER INC-2015134314

PATIENT
  Age: 78 Year
  Sex: Female
  Weight: 89.34 kg

DRUGS (2)
  1. LYRICA [Suspect]
     Active Substance: PREGABALIN
  2. LIPITOR [Suspect]
     Active Substance: ATORVASTATIN CALCIUM
     Indication: BLOOD CHOLESTEROL INCREASED
     Dosage: 4 MG, 1X/DAY, (ONE AT NIGHT)

REACTIONS (6)
  - Diabetes mellitus [Unknown]
  - Muscle disorder [Unknown]
  - Urinary tract infection [Unknown]
  - Muscle spasms [Unknown]
  - Nervousness [Unknown]
  - Feeling abnormal [Unknown]
